FAERS Safety Report 22158039 (Version 1)
Quarter: 2023Q1

REPORT INFORMATION
  Report Type: Spontaneous
  Country: US (occurrence: US)
  Receive Date: 20230330
  Receipt Date: 20230330
  Transmission Date: 20230418
  Serious: No
  Sender: FDA-Public Use
  Company Number: US-BoehringerIngelheim-2023-BI-228628

PATIENT
  Age: 77 Year
  Sex: Female

DRUGS (1)
  1. JARDIANCE [Suspect]
     Active Substance: EMPAGLIFLOZIN
     Indication: Product used for unknown indication
     Route: 048

REACTIONS (3)
  - Rash [Recovered/Resolved]
  - Asthenia [Unknown]
  - Pruritus [Unknown]

NARRATIVE: CASE EVENT DATE: 20230325
